FAERS Safety Report 5872440-5 (Version None)
Quarter: 2008Q3

REPORT INFORMATION
  Report Type: 
  Country: None (occurrence: None)
  Receive Date: 20080905
  Receipt Date: 20080828
  Transmission Date: 20090109
  Serious: Yes (Hospitalization, Other)
  Sender: FDA-Public Use
  Company Number: PHBS2008IT05567

PATIENT
  Age: 42 Year
  Sex: Female
  Weight: 86 kg

DRUGS (5)
  1. OXYTOCIN [Suspect]
  2. ERGONOVINE [Suspect]
     Indication: UTERINE HAEMORRHAGE
  3. BUPIVACAINE [Concomitant]
     Dosage: 10 MG, UNK
  4. FENTANYL-25 [Concomitant]
     Dosage: 20 UG, UNK
  5. MORPHINE [Concomitant]
     Dosage: 0.25 MG, UNK

REACTIONS (16)
  - ACIDOSIS [None]
  - CHEST PAIN [None]
  - DILATATION VENTRICULAR [None]
  - DYSPNOEA [None]
  - EJECTION FRACTION DECREASED [None]
  - ENDOTRACHEAL INTUBATION [None]
  - HYPERKINESIA [None]
  - HYPOTENSION [None]
  - HYPOXIA [None]
  - MECHANICAL VENTILATION [None]
  - OXYGEN SATURATION DECREASED [None]
  - PULMONARY OEDEMA [None]
  - SINUS TACHYCARDIA [None]
  - STRESS CARDIOMYOPATHY [None]
  - UTERINE ATONY [None]
  - UTERINE HAEMORRHAGE [None]
